FAERS Safety Report 5499266-9 (Version None)
Quarter: 2007Q4

REPORT INFORMATION
  Report Type: 
  Country: None (occurrence: None)
  Receive Date: 20071026
  Receipt Date: 20071025
  Transmission Date: 20080405
  Serious: Yes (Other)
  Sender: FDA-Public Use
  Company Number: US-JNJFOC-20071002664

PATIENT
  Sex: Female
  Weight: 57.61 kg

DRUGS (4)
  1. RISPERDAL [Suspect]
     Route: 048
  2. RISPERDAL [Suspect]
     Indication: DRUG USE FOR UNKNOWN INDICATION
     Route: 048
  3. POTASSIUM CHLORIDE [Concomitant]
  4. ATIVAN [Concomitant]

REACTIONS (7)
  - CELLS IN URINE [None]
  - FLANK PAIN [None]
  - HAEMATURIA [None]
  - HEPATIC ENZYME INCREASED [None]
  - PSYCHOTIC DISORDER [None]
  - RENAL DISORDER [None]
  - VISUAL ACUITY REDUCED [None]
